FAERS Safety Report 13339560 (Version 2)
Quarter: 2017Q2

REPORT INFORMATION
  Report Type: Report from Study
  Country: CN (occurrence: CN)
  Receive Date: 20170315
  Receipt Date: 20170412
  Transmission Date: 20170830
  Serious: Yes (Hospitalization)
  Sender: FDA-Public Use
  Company Number: PHHY2017CN035282

PATIENT
  Age: 51 Year
  Sex: Male
  Weight: 95 kg

DRUGS (3)
  1. GENERIC METFORMIN [Suspect]
     Active Substance: METFORMIN HYDROCHLORIDE
     Indication: TYPE 2 DIABETES MELLITUS
     Dosage: 2000 MG, BID
     Route: 065
     Dates: start: 20160323, end: 20160601
  2. GALVUS [Suspect]
     Active Substance: VILDAGLIPTIN
     Indication: TYPE 2 DIABETES MELLITUS
     Dosage: 100 MG, QD
     Route: 048
     Dates: start: 20151130
  3. GLICLAZIDE [Suspect]
     Active Substance: GLICLAZIDE
     Indication: HYPOGLYCAEMIA
     Dosage: 60 MG, QD
     Route: 065

REACTIONS (2)
  - Pancreatitis acute [Recovered/Resolved]
  - Abdominal pain [Recovered/Resolved]

NARRATIVE: CASE EVENT DATE: 20160701
